FAERS Safety Report 7664844 (Version 7)
Quarter: 2014Q3

REPORT INFORMATION
  Report Type: Spontaneous
  Country: US (occurrence: US)
  Receive Date: 20101111
  Receipt Date: 20140813
  Transmission Date: 20150326
  Serious: Yes (Hospitalization, Other)
  Sender: FDA-Public Use
  Company Number: US-ROCHE-718645

PATIENT
  Age: 13 Year
  Sex: Female
  Weight: 61.2 kg

DRUGS (2)
  1. TYLENOL [Concomitant]
     Active Substance: ACETAMINOPHEN
  2. ACCUTANE [Suspect]
     Active Substance: ISOTRETINOIN
     Indication: ACNE
     Route: 065
     Dates: start: 199303, end: 199503

REACTIONS (23)
  - Gastrointestinal injury [Unknown]
  - Inflammatory bowel disease [Unknown]
  - Chills [Unknown]
  - Visual acuity reduced [Recovered/Resolved]
  - Dyspnoea [Unknown]
  - Feeling hot [Unknown]
  - Eye haemorrhage [Unknown]
  - Tonsillitis [Unknown]
  - Suicidal ideation [Unknown]
  - Irritable bowel syndrome [Unknown]
  - Fall [Unknown]
  - Intestinal obstruction [Unknown]
  - Anal abscess [Unknown]
  - Nausea [Unknown]
  - Anal fissure [Unknown]
  - Fistula [Unknown]
  - Enteritis [Unknown]
  - Intestinal perforation [Unknown]
  - Breast pain [Unknown]
  - Crohn^s disease [Unknown]
  - Depression [Unknown]
  - Suicide attempt [Unknown]
  - Bronchitis [Unknown]

NARRATIVE: CASE EVENT DATE: 19930406
